FAERS Safety Report 9725970 (Version 1)
Quarter: 2013Q4

REPORT INFORMATION
  Report Type: Spontaneous
  Country: AR (occurrence: AR)
  Receive Date: 20131203
  Receipt Date: 20131203
  Transmission Date: 20140711
  Serious: Yes (Death)
  Sender: FDA-Public Use
  Company Number: AR-SA-2013SA125296

PATIENT
  Age: 64 Year
  Sex: Male

DRUGS (5)
  1. CLOPIDOGREL BISULFATE [Suspect]
     Indication: PRODUCT USED FOR UNKNOWN INDICATION
     Route: 048
  2. ABATACEPT [Suspect]
     Indication: PRODUCT USED FOR UNKNOWN INDICATION
     Route: 042
     Dates: start: 20120427, end: 20130726
  3. LEFLUNOMIDE [Concomitant]
     Route: 048
  4. ENALAPRIL [Concomitant]
     Route: 048
  5. CARVEDILOL [Concomitant]
     Route: 048

REACTIONS (1)
  - Sudden death [Fatal]
